FAERS Safety Report 7514434-X (Version None)
Quarter: 2011Q2

REPORT INFORMATION
  Report Type: 
  Country: None (occurrence: None)
  Receive Date: 20110601
  Receipt Date: 20110519
  Transmission Date: 20111010
  Serious: Yes (Hospitalization)
  Sender: FDA-Public Use
  Company Number: IT-JNJFOC-20110409046

PATIENT
  Sex: Male

DRUGS (2)
  1. VALPROATE SODIUM [Suspect]
     Indication: EPILEPSY
     Route: 048
     Dates: start: 20110302, end: 20110307
  2. RISPERIDONE [Suspect]
     Indication: EPILEPSY
     Route: 048
     Dates: start: 20110302, end: 20110307

REACTIONS (5)
  - CONVULSION [None]
  - VOMITING [None]
  - ABDOMINAL PAIN [None]
  - HYPERGLYCAEMIA [None]
  - OFF LABEL USE [None]
